FAERS Safety Report 8804437 (Version 1)
Quarter: 2012Q4

REPORT INFORMATION
  Report Type: 
  Country: US (occurrence: US)
  Receive Date: 20120924
  Receipt Date: 20120924
  Transmission Date: 20130627
  Serious: Yes (Hospitalization)
  Sender: FDA-Public Use
  Company Number: US-BAYER-2012-097585

PATIENT
  Age: 35 Year
  Sex: Female
  Weight: 58 kg

DRUGS (29)
  1. YAZ [Suspect]
     Indication: ENDOMETRIOSIS
     Dosage: UNK
     Dates: start: 2005, end: 20091127
  2. YASMIN [Suspect]
     Indication: ENDOMETRIOSIS
     Dosage: UNK
     Dates: start: 20051029, end: 200806
  3. CHLOROPHYLL [Concomitant]
     Dosage: UNK
     Dates: start: 20090525
  4. ELECTROLYTE [Concomitant]
     Dosage: daily
     Dates: start: 20090525
  5. CALLIC NIGHT [Concomitant]
     Dosage: daily
     Dates: start: 20090525
  6. FORTUNE DELIGHT [Concomitant]
     Dosage: daily
     Dates: start: 20090525
  7. VITASPRAY [Concomitant]
     Dosage: daily
     Dates: start: 20090525
  8. VITADOPHILUS [Concomitant]
     Dosage: daily
     Dates: start: 20090525
  9. NUPLUS [Concomitant]
     Dosage: daily
     Dates: start: 20090525
  10. LIQUID 5 [Concomitant]
     Dosage: daily
     Dates: start: 20090525
  11. QUINARY [Concomitant]
     Dosage: daily
     Dates: start: 20090525
  12. ALPHAC [Concomitant]
     Dosage: daily
     Dates: start: 20090525
  13. BELLA [Concomitant]
     Dosage: daily
     Dates: start: 20090525
  14. BEAUTY PEARL [Concomitant]
     Dosage: daily
     Dates: start: 20090525
  15. FREE AMINO ACID [Concomitant]
     Dosage: daily
     Dates: start: 20090525
  16. SIBERIAN GINSENG [Concomitant]
     Dosage: daily
     Dates: start: 20090525
  17. LYSINE [Concomitant]
     Dosage: daily
     Dates: start: 20090525
  18. GINER [Concomitant]
     Dosage: daily
     Dates: start: 20090525
  19. ESE [Concomitant]
     Dosage: daily
     Dates: start: 20090525
  20. NUTROCALM [Concomitant]
     Dosage: daily
     Dates: start: 20090525
  21. DAMIANA [Concomitant]
     Dosage: daily
     Dates: start: 20090525
  22. L REUTERI [Concomitant]
     Dosage: daily
     Dates: start: 20090525
  23. FEVERFEW [Concomitant]
     Dosage: daily
     Dates: start: 20090525
  24. MULLEIN EXTRACT [Concomitant]
     Dosage: daily
     Dates: start: 20090525
  25. PASSION FLOWER [Concomitant]
     Dosage: daily
     Dates: start: 20090525
  26. ROSE HIPS [Concomitant]
     Dosage: daily
     Dates: start: 20090525
  27. PERCOCET [Concomitant]
     Indication: DEEP VEIN THROMBOSIS
  28. PERCOCET [Concomitant]
     Indication: PAIN
  29. NSAID^S [Concomitant]

REACTIONS (6)
  - Deep vein thrombosis [None]
  - Pain [None]
  - Pain in extremity [None]
  - Oedema peripheral [None]
  - Anxiety [None]
  - Decreased activity [None]
